FAERS Safety Report 4927717-4 (Version None)
Quarter: 2006Q1

REPORT INFORMATION
  Report Type: 
  Country: None (occurrence: None)
  Receive Date: 20060222
  Receipt Date: 20060130
  Transmission Date: 20060701
  Serious: Yes (Hospitalization, Other)
  Sender: FDA-Public Use
  Company Number: 2006P1000038

PATIENT
  Age: 62 Year
  Sex: Female
  Weight: 57 kg

DRUGS (6)
  1. RETEPLASE (RETEPLASE) [Suspect]
     Indication: ACUTE MYOCARDIAL INFARCTION
     Dosage: IV
     Route: 042
     Dates: start: 20051128, end: 20051128
  2. ABCIXIMAB (ABCIXIMAB) [Suspect]
     Indication: ACUTE MYOCARDIAL INFARCTION
     Dosage: IV
     Route: 042
     Dates: start: 20051128
  3. ASPIRIN [Concomitant]
  4. TICLOPIDINE HCL [Concomitant]
  5. PERINDOPRIL [Concomitant]
  6. SIMVASTATIN [Concomitant]

REACTIONS (5)
  - CORONARY ARTERY DISEASE [None]
  - CORONARY ARTERY STENOSIS [None]
  - EJECTION FRACTION DECREASED [None]
  - SINUS BRADYCARDIA [None]
  - VENTRICULAR HYPOKINESIA [None]
